FAERS Safety Report 8082158-9 (Version None)
Quarter: 2012Q1

REPORT INFORMATION
  Report Type: 
  Country: None (occurrence: None)
  Receive Date: 20120127
  Receipt Date: 20110118
  Transmission Date: 20120608
  Serious: No
  Sender: FDA-Public Use
  Company Number: US-ABBOTT-11P-163-0699928-00

PATIENT
  Sex: Female
  Weight: 75.818 kg

DRUGS (3)
  1. PREDNISONE TAB [Concomitant]
     Indication: RHEUMATOID ARTHRITIS
  2. MELOXICAM [Concomitant]
     Indication: SYSTEMIC LUPUS ERYTHEMATOSUS
  3. HUMIRA [Suspect]
     Indication: RHEUMATOID ARTHRITIS
     Dates: start: 20110113

REACTIONS (5)
  - FEELING HOT [None]
  - CHEST PAIN [None]
  - ABDOMINAL PAIN UPPER [None]
  - COLD SWEAT [None]
  - ABDOMINAL DISTENSION [None]
